FAERS Safety Report 22262207 (Version 2)
Quarter: 2023Q2

REPORT INFORMATION
  Report Type: Other
  Country: GB (occurrence: None)
  Receive Date: 20230428
  Receipt Date: 20230515
  Transmission Date: 20230722
  Serious: Yes (Hospitalization)
  Sender: FDA-Public Use
  Company Number: GB-ROCHE-3272298

PATIENT
  Sex: Female

DRUGS (1)
  1. RISDIPLAM [Suspect]
     Active Substance: RISDIPLAM
     Indication: Product used for unknown indication
     Dosage: RX STATED TO GIVE 3.8ML TO PROVIDE PATIENT WEIGHING 12.6KG 3.1MG OF RISDIPLAM
     Route: 065
     Dates: start: 202301

REACTIONS (3)
  - Illness [Unknown]
  - Weight decreased [Unknown]
  - Product prescribing error [Unknown]
